FAERS Safety Report 7154879 (Version 2)
Quarter: 2014Q3

REPORT INFORMATION
  Report Type: Spontaneous
  Country: US (occurrence: None)
  Receive Date: 20091008
  Receipt Date: 20140903
  Transmission Date: 20150326
  Serious: Yes (Other)
  Sender: FDA-Public Use
  Company Number: 2009S1007579

PATIENT
  Age: 73 Year
  Sex: Male
  Weight: 101.15 kg

DRUGS (8)
  1. HYDROCHLOROTHIAZIDE. [Concomitant]
     Active Substance: HYDROCHLOROTHIAZIDE
  2. IPRATROPIUM BROMIDE AND ALBUTEROL SULFATE [Concomitant]
     Active Substance: ALBUTEROL SULFATE\IPRATROPIUM BROMIDE
  3. PHOSPHO-SODA [Suspect]
     Active Substance: SODIUM PHOSPHATE, DIBASIC\SODIUM PHOSPHATE, MONOBASIC
     Indication: COLONOSCOPY
     Dosage: PO; PO; PO
     Route: 048
     Dates: start: 20070111, end: 20070111
  4. PLAVIX [Concomitant]
     Active Substance: CLOPIDOGREL BISULFATE
  5. LISINOPRIL. [Concomitant]
     Active Substance: LISINOPRIL
  6. ATENOLOL. [Concomitant]
     Active Substance: ATENOLOL
  7. INDOMETHACIN. [Concomitant]
     Active Substance: INDOMETHACIN
  8. HYDROCORTISONE. [Concomitant]
     Active Substance: HYDROCORTISONE

REACTIONS (14)
  - Weight decreased [None]
  - Constipation [None]
  - Diarrhoea [None]
  - Gastritis [None]
  - Helicobacter test positive [None]
  - Iron deficiency anaemia [None]
  - Renal cyst [None]
  - Renal failure chronic [None]
  - Nephrogenic anaemia [None]
  - Cholecystitis [None]
  - Neoplasm prostate [None]
  - Chills [None]
  - Hyperuricaemia [None]
  - Hyponatraemia [None]

NARRATIVE: CASE EVENT DATE: 200701
